FAERS Safety Report 16307750 (Version 4)
Quarter: 2022Q1

REPORT INFORMATION
  Report Type: Spontaneous
  Country: US (occurrence: None)
  Receive Date: 20190514
  Receipt Date: 20220302
  Transmission Date: 20220423
  Serious: Yes (Hospitalization, Other)
  Sender: FDA-Public Use
  Company Number: 2019SE68093

PATIENT
  Age: 847 Month
  Sex: Male
  Weight: 69.4 kg

DRUGS (55)
  1. NEXIUM [Suspect]
     Active Substance: ESOMEPRAZOLE MAGNESIUM
     Indication: Gastrooesophageal reflux disease
     Route: 048
     Dates: start: 20000101, end: 20161231
  2. NEXIUM [Suspect]
     Active Substance: ESOMEPRAZOLE MAGNESIUM
     Indication: Gastrooesophageal reflux disease
     Route: 048
     Dates: start: 2005, end: 2017
  3. NEXIUM [Suspect]
     Active Substance: ESOMEPRAZOLE MAGNESIUM
     Indication: Gastrooesophageal reflux disease
     Route: 048
     Dates: start: 20050101, end: 20171231
  4. NEXIUM [Suspect]
     Active Substance: ESOMEPRAZOLE MAGNESIUM
     Indication: Gastrooesophageal reflux disease
     Dosage: GENERIC
     Route: 048
     Dates: start: 20081125
  5. PRILOSEC [Suspect]
     Active Substance: OMEPRAZOLE MAGNESIUM
     Route: 048
     Dates: start: 2005, end: 2017
  6. PROTONIX [Suspect]
     Active Substance: PANTOPRAZOLE SODIUM
     Indication: Gastrooesophageal reflux disease
     Route: 048
     Dates: start: 2005, end: 2017
  7. PROTONIX [Suspect]
     Active Substance: PANTOPRAZOLE SODIUM
     Indication: Gastrooesophageal reflux disease
     Route: 048
     Dates: start: 20081207
  8. PROTONIX [Suspect]
     Active Substance: PANTOPRAZOLE SODIUM
     Indication: Gastrooesophageal reflux disease
     Dosage: GENERIC
     Route: 048
  9. PROTONIX [Suspect]
     Active Substance: PANTOPRAZOLE SODIUM
     Indication: Gastrooesophageal reflux disease
     Dosage: GENERIC
     Route: 065
  10. LIPITOR [Concomitant]
     Active Substance: ATORVASTATIN CALCIUM
  11. RAMELTEON [Concomitant]
     Active Substance: RAMELTEON
  12. AMOXICILLIN TRI/POTASSIUM CLAV [Concomitant]
  13. DECONSAL II [Concomitant]
  14. ALPRAZOLAM [Concomitant]
     Active Substance: ALPRAZOLAM
  15. TEMAZEPAM [Concomitant]
     Active Substance: TEMAZEPAM
  16. POTASSIUM CHLORIDE [Concomitant]
     Active Substance: POTASSIUM CHLORIDE
  17. ALFUZOSIN [Concomitant]
     Active Substance: ALFUZOSIN
  18. VITAMIN D2 [Concomitant]
     Active Substance: ERGOCALCIFEROL
  19. BENZONATATE [Concomitant]
     Active Substance: BENZONATATE
  20. CEFDINIR [Concomitant]
     Active Substance: CEFDINIR
  21. AZITHROMYCIN [Concomitant]
     Active Substance: AZITHROMYCIN
  22. CIPROFLOXACIN HYDROCHLORIDE [Concomitant]
     Active Substance: CIPROFLOXACIN HYDROCHLORIDE
  23. CYANOCOBALAMIN [Concomitant]
     Active Substance: CYANOCOBALAMIN
  24. CIALIS [Concomitant]
     Active Substance: TADALAFIL
  25. GABAPENTIN [Concomitant]
     Active Substance: GABAPENTIN
  26. CEPHALEXIN [Concomitant]
     Active Substance: CEPHALEXIN
  27. OXYCODONE HCL/ACETAMINOPHEN [Concomitant]
  28. ACETAMINOPHEN [Concomitant]
     Active Substance: ACETAMINOPHEN
  29. CARISOPRODOL [Concomitant]
     Active Substance: CARISOPRODOL
  30. DARVOCET-N 100 [Concomitant]
     Active Substance: ACETAMINOPHEN\PROPOXYPHENE NAPSYLATE
  31. FLOMAX [Concomitant]
     Active Substance: TAMSULOSIN HYDROCHLORIDE
  32. MEGESTROL ACETATE [Concomitant]
     Active Substance: MEGESTROL ACETATE
  33. METOPROLOL SUCCINATE [Concomitant]
     Active Substance: METOPROLOL SUCCINATE
  34. CLONIDINE [Concomitant]
     Active Substance: CLONIDINE
  35. SKELAXIN [Concomitant]
     Active Substance: METAXALONE
  36. HYDROMORPHONE HCL [Concomitant]
     Active Substance: HYDROMORPHONE HYDROCHLORIDE
  37. VIAGRA [Concomitant]
     Active Substance: SILDENAFIL CITRATE
  38. CELEBREX [Concomitant]
     Active Substance: CELECOXIB
  39. ROZEREM [Concomitant]
     Active Substance: RAMELTEON
  40. LUNESTA [Concomitant]
     Active Substance: ESZOPICLONE
  41. BENAZEPRIL HYDROCHLORIDE [Concomitant]
     Active Substance: BENAZEPRIL HYDROCHLORIDE
  42. VERAMYST [Concomitant]
     Active Substance: FLUTICASONE FUROATE
  43. CEFUROXIME AXETIL [Concomitant]
     Active Substance: CEFUROXIME AXETIL
  44. LEVITRA [Concomitant]
     Active Substance: VARDENAFIL HYDROCHLORIDE
  45. FELODIPINE [Concomitant]
     Active Substance: FELODIPINE
  46. LORATADINE [Concomitant]
     Active Substance: LORATADINE
  47. OXYMETAZOLINE HYDROCHLORIDE [Concomitant]
     Active Substance: OXYMETAZOLINE HYDROCHLORIDE
  48. LEVOFLOXACIN [Concomitant]
     Active Substance: LEVOFLOXACIN
  49. GATIFLOXACIN [Concomitant]
     Active Substance: GATIFLOXACIN
  50. PREDNISONE [Concomitant]
     Active Substance: PREDNISONE
  51. FLONASE [Concomitant]
     Active Substance: FLUTICASONE PROPIONATE
  52. RESTORIL [Concomitant]
     Active Substance: TEMAZEPAM
  53. COMPAZINE [Concomitant]
     Active Substance: PROCHLORPERAZINE MALEATE
  54. NORVASC [Concomitant]
     Active Substance: AMLODIPINE BESYLATE
  55. UROXATRAL [Concomitant]
     Active Substance: ALFUZOSIN HYDROCHLORIDE

REACTIONS (9)
  - Chronic kidney disease [Not Recovered/Not Resolved]
  - Acute kidney injury [Not Recovered/Not Resolved]
  - Acidosis [Not Recovered/Not Resolved]
  - Sepsis [Not Recovered/Not Resolved]
  - Nephritis [Not Recovered/Not Resolved]
  - Hypokalaemia [Not Recovered/Not Resolved]
  - Renal failure [Unknown]
  - End stage renal disease [Unknown]
  - Renal tubular necrosis [Unknown]

NARRATIVE: CASE EVENT DATE: 20081201
